FAERS Safety Report 6267455-1 (Version None)
Quarter: 2009Q3

REPORT INFORMATION
  Report Type: 
  Country: None (occurrence: None)
  Receive Date: 20090714
  Receipt Date: 20090702
  Transmission Date: 20100115
  Serious: Yes (Hospitalization)
  Sender: FDA-Public Use
  Company Number: US-WYE-H06895008

PATIENT
  Age: 61 Year
  Sex: Female
  Weight: 68.1 kg

DRUGS (11)
  1. RELISTOR [Suspect]
     Indication: CONSTIPATION
     Dosage: 12 MG EVERY 1 TOT
     Route: 058
     Dates: start: 20081101, end: 20081101
  2. PROTONIX [Concomitant]
     Route: 048
  3. LYRICA [Concomitant]
     Route: 048
  4. PREDNISONE [Concomitant]
     Route: 048
  5. METHADONE HCL [Concomitant]
  6. BACLOFEN [Concomitant]
     Route: 048
  7. CLONIDINE [Concomitant]
     Dosage: TWO PATCHES/0.1MG WEEKLY AND ANOTHER 0.2MG WEEKLY
     Route: 062
  8. VITAMIN B-12 [Concomitant]
     Route: 030
  9. NORVASC [Concomitant]
     Route: 048
  10. MORPHINE [Concomitant]
     Dosage: UNSPECIFIED
     Route: 065
  11. CYMBALTA [Concomitant]
     Route: 048

REACTIONS (1)
  - DUODENAL ULCER PERFORATION [None]
